FAERS Safety Report 11605206 (Version 1)
Quarter: 2015Q3

REPORT INFORMATION
  Report Type: Spontaneous
  Country: US (occurrence: US)
  Receive Date: 20150916
  Receipt Date: 20150916
  Transmission Date: 20151125
  Serious: No
  Sender: FDA-Public Use
  Company Number: US-ELI_LILLY_AND_COMPANY-US201404003044

PATIENT
  Age: 47 Year
  Sex: Male

DRUGS (3)
  1. HUMALOG [Suspect]
     Active Substance: INSULIN LISPRO
     Indication: TYPE 2 DIABETES MELLITUS
     Dosage: 6 U, UNKNOWN
     Route: 065
     Dates: start: 20140312
  2. LEVEMIR [Concomitant]
     Active Substance: INSULIN DETEMIR
     Dosage: 20 U, UNK
  3. VICTOZA [Concomitant]
     Active Substance: LIRAGLUTIDE

REACTIONS (5)
  - Malaise [Unknown]
  - Foreign body [Unknown]
  - Blood glucose increased [Unknown]
  - Injection site mass [Unknown]
  - Underdose [Unknown]

NARRATIVE: CASE EVENT DATE: 20140407
